FAERS Safety Report 8829300 (Version 1)
Quarter: 2012Q4

REPORT INFORMATION
  Report Type: Spontaneous
  Country: US (occurrence: None)
  Receive Date: 20121005
  Receipt Date: 20121005
  Transmission Date: 20130627
  Serious: Yes (Other)
  Sender: FDA-Public Use
  Company Number: None

PATIENT
  Age: 58 Year
  Sex: Female
  Weight: 55.79 kg

DRUGS (2)
  1. METFORMIN [Suspect]
     Indication: TYPE II DIABETES MELLITUS
     Route: 048
     Dates: start: 20120802, end: 20120818
  2. METFORMIN [Concomitant]

REACTIONS (5)
  - Renal impairment [None]
  - Fluid retention [None]
  - Abdominal distension [None]
  - Abdominal distension [None]
  - Urine output decreased [None]
